FAERS Safety Report 5581984-5 (Version None)
Quarter: 2008Q1

REPORT INFORMATION
  Report Type: 
  Country: None (occurrence: None)
  Receive Date: 20080104
  Receipt Date: 20071227
  Transmission Date: 20080703
  Serious: Yes (Other)
  Sender: FDA-Public Use
  Company Number: BR-JNJFOC-20080100046

PATIENT
  Age: 55 Year
  Sex: Male

DRUGS (2)
  1. HALDOL [Suspect]
     Indication: SUICIDE ATTEMPT
     Dosage: TOTAL 20 MG
     Route: 048
  2. PERICYAZINE [Suspect]
     Indication: SUICIDE ATTEMPT

REACTIONS (3)
  - HYPOTENSION [None]
  - SOMNOLENCE [None]
  - SUICIDE ATTEMPT [None]
